FAERS Safety Report 18402069 (Version 1)
Quarter: 2020Q4

REPORT INFORMATION
  Report Type: Spontaneous
  Country: IL (occurrence: IL)
  Receive Date: 20201019
  Receipt Date: 20201019
  Transmission Date: 20210114
  Serious: Yes (Death)
  Sender: FDA-Public Use
  Company Number: NVSC2020IL280856

PATIENT
  Age: 35 Week
  Sex: Male

DRUGS (2)
  1. VINBLASTINE [Suspect]
     Active Substance: VINBLASTINE
     Indication: INFANTILE FIBROMATOSIS
     Dosage: UNK
     Route: 065
  2. METHOTREXATE. [Suspect]
     Active Substance: METHOTREXATE
     Indication: INFANTILE FIBROMATOSIS
     Dosage: UNK
     Route: 065

REACTIONS (5)
  - Pancytopenia [Fatal]
  - Cardiac failure [Fatal]
  - Respiratory failure [Fatal]
  - Sepsis [Fatal]
  - Product use in unapproved indication [Unknown]
